FAERS Safety Report 4905326-0 (Version None)
Quarter: 2006Q1

REPORT INFORMATION
  Report Type: 
  Country: None (occurrence: None)
  Receive Date: 20060207
  Receipt Date: 20060207
  Transmission Date: 20060701
  Serious: Yes (Other)
  Sender: FDA-Public Use
  Company Number: None

PATIENT
  Sex: Male
  Weight: 181.4388 kg

DRUGS (8)
  1. SIMVASTATIN [Suspect]
     Indication: LOW DENSITY LIPOPROTEIN INCREASED
     Dosage: 10MG     1/DAY   PO
     Route: 048
     Dates: start: 20051203, end: 20060115
  2. LANTUS [Concomitant]
  3. NOVOLOG [Concomitant]
  4. TRAMADOL [Concomitant]
  5. IBUPROFEN [Concomitant]
  6. ATENOLOL [Concomitant]
  7. OMEPRAZOLE [Concomitant]
  8. HYDROCHLOROTHIAZIDE [Concomitant]

REACTIONS (2)
  - AMNESIA [None]
  - NEUROPATHY PERIPHERAL [None]
